FAERS Safety Report 5276907-2 (Version None)
Quarter: 2007Q1

REPORT INFORMATION
  Report Type: 
  Country: None (occurrence: None)
  Receive Date: 20070327
  Receipt Date: 20070322
  Transmission Date: 20070707
  Serious: Yes (Other)
  Sender: FDA-Public Use
  Company Number: US-BAYER-200710743BWH

PATIENT
  Age: 70 Year
  Sex: Female

DRUGS (1)
  1. CIPRO [Suspect]
     Indication: DRUG USE FOR UNKNOWN INDICATION
     Dosage: TOTAL DAILY DOSE: 4000 MG  UNIT DOSE: 500 MG
     Route: 048
     Dates: start: 20070227, end: 20070227

REACTIONS (1)
  - ACCIDENTAL OVERDOSE [None]
